FAERS Safety Report 4716646-7 (Version None)
Quarter: 2005Q3

REPORT INFORMATION
  Report Type: 
  Country: None (occurrence: None)
  Receive Date: 20050714
  Receipt Date: 20050701
  Transmission Date: 20060218
  Serious: Yes (Other)
  Sender: FDA-Public Use
  Company Number: 2005096135

PATIENT
  Age: 45 Year
  Sex: Female
  Weight: 68.0396 kg

DRUGS (6)
  1. BEXTRA [Suspect]
     Indication: NERVE COMPRESSION
     Dosage: 20 MG (20 MG, 1 IN 1 D), ORAL
     Route: 048
     Dates: start: 20040701
  2. CELEBREX [Suspect]
     Indication: NERVE COMPRESSION
     Dosage: 200 MG (200 MG, 1 IN1 D), ORAL
     Route: 048
     Dates: start: 20050414
  3. XANAX [Concomitant]
  4. AMBIEN [Concomitant]
  5. INDERAL ^WYETH-AYERST^ (PROPRANOLOL HYDROCHLORIDE) [Concomitant]
  6. MAXALT [Concomitant]

REACTIONS (14)
  - ARTHROPATHY [None]
  - ASTHENIA [None]
  - DEPRESSION [None]
  - DIPLEGIA [None]
  - DISEASE RECURRENCE [None]
  - DRUG INEFFECTIVE [None]
  - FEELING ABNORMAL [None]
  - GENERAL PHYSICAL HEALTH DETERIORATION [None]
  - HEART RATE INCREASED [None]
  - LIMB DISCOMFORT [None]
  - MIGRAINE [None]
  - PAIN [None]
  - SOCIAL AVOIDANT BEHAVIOUR [None]
  - THERAPEUTIC RESPONSE UNEXPECTED [None]
